FAERS Safety Report 6342146-7 (Version None)
Quarter: 2009Q3

REPORT INFORMATION
  Report Type: 
  Country: None (occurrence: None)
  Receive Date: 20090903
  Receipt Date: 20090903
  Transmission Date: 20100115
  Serious: Yes (Other)
  Sender: FDA-Public Use
  Company Number: None

PATIENT
  Sex: Female
  Weight: 65.7716 kg

DRUGS (3)
  1. NEOSPORIN ANTIBIOTIC LOTION [Suspect]
     Indication: INFECTION PROPHYLAXIS
     Dosage: DAB ONCE
     Dates: start: 20090726, end: 20090729
  2. TARGET FIRST AID ANTIBIOTIC + PAIN RELIEF CREAM [Suspect]
     Indication: INFECTION PROPHYLAXIS
     Dosage: DAB ONCE
     Dates: start: 20090415, end: 20090418
  3. TARGET FIRST AID ANTIBIOTIC + PAIN RELIEF CREAM [Suspect]

REACTIONS (2)
  - MELANOCYTIC NAEVUS [None]
  - WOUND INFECTION [None]
